FAERS Safety Report 5801665-X (Version None)
Quarter: 2008Q3

REPORT INFORMATION
  Report Type: 
  Country: None (occurrence: None)
  Receive Date: 20080707
  Receipt Date: 20080623
  Transmission Date: 20090109
  Serious: Yes (Hospitalization)
  Sender: FDA-Public Use
  Company Number: B0509244A

PATIENT
  Age: 21 Year
  Sex: Female

DRUGS (3)
  1. AUGMENTIN '125' [Suspect]
     Indication: CYSTITIS KLEBSIELLA
     Route: 048
     Dates: start: 20071218, end: 20071228
  2. PLAQUENIL [Suspect]
     Indication: DRUG USE FOR UNKNOWN INDICATION
     Route: 048
     Dates: start: 20071227, end: 20071228
  3. CORTANCYL [Concomitant]
     Indication: SYSTEMIC LUPUS ERYTHEMATOSUS
     Dosage: 30MG PER DAY
     Route: 048

REACTIONS (8)
  - ARTHRALGIA [None]
  - GAMMA-GLUTAMYLTRANSFERASE INCREASED [None]
  - HYPERSENSITIVITY [None]
  - INCREASED APPETITE [None]
  - PYREXIA [None]
  - RASH [None]
  - SLEEP DISORDER [None]
  - TRANSAMINASES INCREASED [None]
